FAERS Safety Report 21477959 (Version 1)
Quarter: 2022Q4

REPORT INFORMATION
  Report Type: Report from Study
  Country: IT (occurrence: IT)
  Receive Date: 20221019
  Receipt Date: 20221019
  Transmission Date: 20230112
  Serious: Yes (Other)
  Sender: FDA-Public Use
  Company Number: IT-002147023-NVSC2022IT211234

PATIENT
  Age: 26 Day
  Sex: Male

DRUGS (7)
  1. AZACITIDINE [Suspect]
     Active Substance: AZACITIDINE
     Indication: B precursor type acute leukaemia
     Dosage: 55 MG/M2, CYCLIC (EVERY 21 DAYS FOR 4 CYCLES)
     Route: 065
  2. AZACITIDINE [Suspect]
     Active Substance: AZACITIDINE
     Indication: KMT2A gene mutation
     Dosage: EVERY 21 DAYS FOR 4 CYCLES; 75 MG/M2 FOR 5 DAYS
     Route: 065
  3. AZACITIDINE [Suspect]
     Active Substance: AZACITIDINE
     Indication: Acute lymphocytic leukaemia recurrent
     Dosage: EVERY 21 DAYS FOR 4 CYCLES; 55 MG/M2 FOR 7 DAYS
     Route: 065
  4. AZACITIDINE [Suspect]
     Active Substance: AZACITIDINE
     Dosage: EVERY 21 DAYS FOR 4 CYCLES; 75 MG/M2 FOR 7 DAYS
     Route: 065
  5. AZACITIDINE [Suspect]
     Active Substance: AZACITIDINE
     Dosage: 40 MG/M2, CYCLIC, MAINTENANCE 3 CYCLES
     Route: 065
  6. PREDNISONE [Concomitant]
     Active Substance: PREDNISONE
     Indication: Acute lymphocytic leukaemia
     Dosage: 1 MG/M2, CYCLIC
     Route: 065
  7. PREDNISONE [Concomitant]
     Active Substance: PREDNISONE
     Indication: Product used for unknown indication

REACTIONS (2)
  - Gastrointestinal toxicity [Unknown]
  - Cytopenia [Unknown]
